FAERS Safety Report 14300992 (Version 1)
Quarter: 2017Q4

REPORT INFORMATION
  Report Type: Spontaneous
  Country: IT (occurrence: IT)
  Receive Date: 20171219
  Receipt Date: 20171219
  Transmission Date: 20180321
  Serious: Yes (Death)
  Sender: FDA-Public Use
  Company Number: IT-TEVA-2017-IT-832054

PATIENT
  Age: 89 Year
  Sex: Female

DRUGS (1)
  1. ALLOPURINOLO TEVA ITALIA 300 MG COMPRESSE [Suspect]
     Active Substance: ALLOPURINOL
     Route: 048
     Dates: start: 20170730, end: 20170824

REACTIONS (3)
  - Cough [Fatal]
  - Erythema [Fatal]
  - Asthenia [Fatal]

NARRATIVE: CASE EVENT DATE: 20170730
